FAERS Safety Report 18169457 (Version 1)
Quarter: 2020Q3

REPORT INFORMATION
  Report Type: Spontaneous
  Country: US (occurrence: US)
  Receive Date: 20200819
  Receipt Date: 20200819
  Transmission Date: 20201103
  Serious: Yes (Other)
  Sender: FDA-Public Use
  Company Number: US-SCIEGEN-2020SCILIT00223

PATIENT
  Age: 79 Year
  Sex: Male

DRUGS (1)
  1. LAMOTRIGINE TABLETS [Suspect]
     Active Substance: LAMOTRIGINE
     Indication: PARTIAL SEIZURES
     Route: 065

REACTIONS (5)
  - Vertigo [Unknown]
  - Ataxia [Unknown]
  - Cerebrovascular accident [Unknown]
  - Diplopia [Unknown]
  - Toxicity to various agents [Unknown]
